FAERS Safety Report 9928511 (Version 1)
Quarter: 2014Q1

REPORT INFORMATION
  Report Type: Spontaneous
  Country: US (occurrence: None)
  Receive Date: 20140226
  Receipt Date: 20140226
  Transmission Date: 20141002
  Serious: Yes (Hospitalization)
  Sender: FDA-Public Use
  Company Number: None

PATIENT
  Age: 54 Year
  Sex: Male
  Weight: 92.7 kg

DRUGS (3)
  1. CISPLATIN [Suspect]
  2. HCTZ [Concomitant]
  3. LISINOPRIL [Concomitant]

REACTIONS (6)
  - Dehydration [None]
  - Renal failure acute [None]
  - Nausea [None]
  - Mucosal inflammation [None]
  - Fluid intake reduced [None]
  - Odynophagia [None]
